FAERS Safety Report 7862306-3 (Version None)
Quarter: 2011Q4

REPORT INFORMATION
  Report Type: 
  Country: None (occurrence: None)
  Receive Date: 20111027
  Receipt Date: 20101105
  Transmission Date: 20120403
  Serious: No
  Sender: FDA-Public Use
  Company Number: US-AMGEN-USASP2010003651

PATIENT
  Sex: Female

DRUGS (1)
  1. ENBREL [Suspect]
     Indication: PSORIATIC ARTHROPATHY
     Dates: start: 20050201

REACTIONS (7)
  - MULTIPLE ALLERGIES [None]
  - VISUAL ACUITY REDUCED [None]
  - HYPOAESTHESIA [None]
  - MUSCLE TIGHTNESS [None]
  - MUSCLE SPASMS [None]
  - COUGH [None]
  - BLOOD POTASSIUM DECREASED [None]
